FAERS Safety Report 4291790-X (Version None)
Quarter: 2004Q1

REPORT INFORMATION
  Report Type: 
  Country: None (occurrence: None)
  Receive Date: 20040211
  Receipt Date: 20030417
  Transmission Date: 20041129
  Serious: Yes (Life-Threatening, Other)
  Sender: FDA-Public Use
  Company Number: US-GLAXOSMITHKLINE-A0405323A

PATIENT
  Age: 48 Year
  Sex: Male

DRUGS (1)
  1. IMITREX [Suspect]
     Dosage: 6MG UNKNOWN
     Route: 042

REACTIONS (1)
  - MEDICATION ERROR [None]
